FAERS Safety Report 24146756 (Version 1)
Quarter: 2024Q3

REPORT INFORMATION
  Report Type: Spontaneous
  Country: US (occurrence: None)
  Receive Date: 20240729
  Receipt Date: 20240729
  Transmission Date: 20241017
  Serious: Yes (Death, Other)
  Sender: MDD OPERATIONS
  Company Number: US-MDD US Operations-MDD202407-002532

PATIENT
  Age: 71 Year
  Sex: Male

DRUGS (1)
  1. APOKYN [Suspect]
     Active Substance: APOMORPHINE HYDROCHLORIDE
     Indication: Parkinson^s disease
     Dates: start: 20230609

REACTIONS (3)
  - Death [Fatal]
  - Loss of consciousness [Unknown]
  - Hospice care [Unknown]

NARRATIVE: CASE EVENT DATE: 20240501
